FAERS Safety Report 24548765 (Version 1)
Quarter: 2024Q4

REPORT INFORMATION
  Report Type: Spontaneous
  Country: US (occurrence: US)
  Receive Date: 20241025
  Receipt Date: 20241025
  Transmission Date: 20250115
  Serious: Yes (Other)
  Sender: PFIZER
  Company Number: US-PFIZER INC-PV202400136526

PATIENT
  Age: 66 Year
  Sex: Female

DRUGS (32)
  1. SUFENTANIL CITRATE [Suspect]
     Active Substance: SUFENTANIL CITRATE
     Indication: Spinal pain
     Dosage: 65 UG, DAILY
     Route: 037
     Dates: start: 20080908
  2. SUFENTANIL CITRATE [Suspect]
     Active Substance: SUFENTANIL CITRATE
     Dosage: 83 UG, DAILY
     Route: 037
     Dates: start: 20100923
  3. SUFENTANIL CITRATE [Suspect]
     Active Substance: SUFENTANIL CITRATE
     Dosage: 90 UG, DAILY
     Route: 037
     Dates: start: 20120813
  4. SUFENTANIL CITRATE [Suspect]
     Active Substance: SUFENTANIL CITRATE
     Dosage: 91 UG, DAILY
     Route: 037
     Dates: start: 20150708
  5. SUFENTANIL CITRATE [Suspect]
     Active Substance: SUFENTANIL CITRATE
     Dosage: 100 UG, DAILY
     Route: 037
     Dates: start: 20180628
  6. SUFENTANIL CITRATE [Suspect]
     Active Substance: SUFENTANIL CITRATE
     Dosage: 105 UG, DAILY
     Route: 037
     Dates: start: 20190619
  7. SUFENTANIL CITRATE [Suspect]
     Active Substance: SUFENTANIL CITRATE
     Dosage: 110 UG, DAILY
     Route: 037
     Dates: start: 20190820
  8. SUFENTANIL CITRATE [Suspect]
     Active Substance: SUFENTANIL CITRATE
     Dosage: 114 UG, DAILY
     Route: 037
     Dates: start: 20200125
  9. BUPIVACAINE HYDROCHLORIDE [Suspect]
     Active Substance: BUPIVACAINE HYDROCHLORIDE
     Indication: Spinal pain
     Dosage: 2 MG, DAILY
     Route: 037
     Dates: start: 20070222
  10. BUPIVACAINE HYDROCHLORIDE [Suspect]
     Active Substance: BUPIVACAINE HYDROCHLORIDE
     Dosage: 5 MG, DAILY
     Route: 037
     Dates: start: 20080219
  11. BUPIVACAINE HYDROCHLORIDE [Suspect]
     Active Substance: BUPIVACAINE HYDROCHLORIDE
     Dosage: 4.5 MG, DAILY
     Route: 037
     Dates: start: 20080714
  12. BUPIVACAINE HYDROCHLORIDE [Suspect]
     Active Substance: BUPIVACAINE HYDROCHLORIDE
     Dosage: 4 MG, DAILY
     Route: 037
     Dates: start: 20080908
  13. BUPIVACAINE HYDROCHLORIDE [Suspect]
     Active Substance: BUPIVACAINE HYDROCHLORIDE
     Dosage: 5 MG, DAILY
     Route: 037
     Dates: start: 20100923
  14. BUPIVACAINE HYDROCHLORIDE [Suspect]
     Active Substance: BUPIVACAINE HYDROCHLORIDE
     Dosage: 9 MG, DAILY
     Route: 037
     Dates: start: 20120813
  15. BUPIVACAINE HYDROCHLORIDE [Suspect]
     Active Substance: BUPIVACAINE HYDROCHLORIDE
     Dosage: 9 MG, DAILY
     Route: 037
     Dates: start: 20150708
  16. BUPIVACAINE HYDROCHLORIDE [Suspect]
     Active Substance: BUPIVACAINE HYDROCHLORIDE
     Dosage: 10 MG, DAILY
     Route: 037
     Dates: start: 20180628
  17. BUPIVACAINE HYDROCHLORIDE [Suspect]
     Active Substance: BUPIVACAINE HYDROCHLORIDE
     Dosage: 10.4 MG, DAILY
     Route: 037
     Dates: start: 20190619
  18. BUPIVACAINE HYDROCHLORIDE [Suspect]
     Active Substance: BUPIVACAINE HYDROCHLORIDE
     Dosage: 11 MG, DAILY
     Route: 037
     Dates: start: 20190820
  19. BUPIVACAINE HYDROCHLORIDE [Suspect]
     Active Substance: BUPIVACAINE HYDROCHLORIDE
     Dosage: 8 MG, DAILY
     Route: 037
     Dates: start: 20200125
  20. MORPHINE SULFATE [Suspect]
     Active Substance: MORPHINE SULFATE
     Indication: Spinal pain
     Route: 048
  21. TOPIRAMATE [Concomitant]
     Active Substance: TOPIRAMATE
     Indication: Spinal pain
  22. CLONIDINE HYDROCHLORIDE [Concomitant]
     Active Substance: CLONIDINE HYDROCHLORIDE
     Indication: Spinal pain
     Dosage: 60 UG, DAILY
     Route: 037
     Dates: start: 20070222
  23. CLONIDINE HYDROCHLORIDE [Concomitant]
     Active Substance: CLONIDINE HYDROCHLORIDE
     Dosage: 300 UG, DAILY
     Route: 037
     Dates: start: 20080219
  24. CLONIDINE HYDROCHLORIDE [Concomitant]
     Active Substance: CLONIDINE HYDROCHLORIDE
     Dosage: 450 UG, DAILY
     Route: 037
     Dates: start: 20080714
  25. CLONIDINE HYDROCHLORIDE [Concomitant]
     Active Substance: CLONIDINE HYDROCHLORIDE
     Dosage: 390 UG, DAILY
     Route: 037
     Dates: start: 20080908
  26. CLONIDINE HYDROCHLORIDE [Concomitant]
     Active Substance: CLONIDINE HYDROCHLORIDE
     Dosage: 250 UG, DAILY
     Route: 037
     Dates: start: 20100923
  27. CLONIDINE HYDROCHLORIDE [Concomitant]
     Active Substance: CLONIDINE HYDROCHLORIDE
     Dosage: 270 UG, DAILY
     Route: 037
     Dates: start: 20120813
  28. CLONIDINE HYDROCHLORIDE [Concomitant]
     Active Substance: CLONIDINE HYDROCHLORIDE
     Dosage: 270 UG, DAILY
     Route: 037
     Dates: start: 20150708
  29. CLONIDINE HYDROCHLORIDE [Concomitant]
     Active Substance: CLONIDINE HYDROCHLORIDE
     Dosage: 300 UG, DAILY
     Route: 037
     Dates: start: 20180628
  30. CLONIDINE HYDROCHLORIDE [Concomitant]
     Active Substance: CLONIDINE HYDROCHLORIDE
     Dosage: 314 UG, DAILY
     Route: 037
     Dates: start: 20190619
  31. CLONIDINE HYDROCHLORIDE [Concomitant]
     Active Substance: CLONIDINE HYDROCHLORIDE
     Dosage: 330 UG, DAILY
     Route: 037
     Dates: start: 20190820
  32. CLONIDINE HYDROCHLORIDE [Concomitant]
     Active Substance: CLONIDINE HYDROCHLORIDE
     Dosage: 228 UG, DAILY
     Route: 037
     Dates: start: 20200125

REACTIONS (1)
  - Granuloma [Recovered/Resolved with Sequelae]
